FAERS Safety Report 4960313-1 (Version None)
Quarter: 2006Q1

REPORT INFORMATION
  Report Type: 
  Country: None (occurrence: None)
  Receive Date: 20060328
  Receipt Date: 20060310
  Transmission Date: 20060701
  Serious: Yes (Other)
  Sender: FDA-Public Use
  Company Number: DSA_27901_2006

PATIENT
  Age: 50 Year
  Sex: Female

DRUGS (7)
  1. TEMESTA [Suspect]
     Dosage: 1 MG Q DAY PO
     Route: 048
     Dates: start: 20051012, end: 20051020
  2. DIPIPERON [Suspect]
     Dosage: 40 MG Q DAY PO
     Route: 048
     Dates: start: 20051021, end: 20051021
  3. ZYPREXA [Suspect]
     Dosage: 30 MG Q DAY PO
     Route: 048
     Dates: start: 20051015
  4. ZYPREXA [Suspect]
     Dosage: 5 MG QD PO
     Route: 048
     Dates: start: 20051011, end: 20051014
  5. STILNOX [Concomitant]
  6. FOLIC ACID [Concomitant]
  7. VITARUBIN [Concomitant]

REACTIONS (8)
  - ANAEMIA [None]
  - BLOOD PRESSURE DECREASED [None]
  - BUNDLE BRANCH BLOCK [None]
  - DEHYDRATION [None]
  - DRUG INTERACTION POTENTIATION [None]
  - NAUSEA [None]
  - PALLOR [None]
  - SYNCOPE [None]
